FAERS Safety Report 9668664 (Version 2)
Quarter: 2013Q4

REPORT INFORMATION
  Report Type: Report from Study
  Country: GB (occurrence: GB)
  Receive Date: 20131105
  Receipt Date: 20131105
  Transmission Date: 20140711
  Serious: Yes (Hospitalization)
  Sender: FDA-Public Use
  Company Number: GB-009507513-1310GBR002391

PATIENT
  Age: 72 Year
  Sex: Male
  Weight: 74.74 kg

DRUGS (16)
  1. DEXAMETHASONE TABLETS BP 2.0MG [Suspect]
     Indication: PLASMA CELL MYELOMA
     Dosage: 40 MG, UNK
     Route: 048
     Dates: start: 20130716, end: 20130924
  2. DEXAMETHASONE TABLETS BP 2.0MG [Suspect]
     Dosage: UNK,UNK
     Dates: end: 201311
  3. MLN9708 [Suspect]
     Indication: PLASMA CELL MYELOMA
     Dosage: 4 MG, (DAYS 1,8, 15)CYCLE
     Route: 048
     Dates: start: 20130716, end: 20130924
  4. REVLIMID [Suspect]
     Indication: PLASMA CELL MYELOMA
     Dosage: 15 MG, UNK
     Route: 048
     Dates: start: 20130716, end: 20130924
  5. ACYCLOVIR [Concomitant]
     Indication: PRODUCT USED FOR UNKNOWN INDICATION
  6. CALCICHEW [Concomitant]
     Indication: PRODUCT USED FOR UNKNOWN INDICATION
  7. COTRIMOXAZOL AL FORTE [Concomitant]
     Indication: PRODUCT USED FOR UNKNOWN INDICATION
  8. FUROSEMIDE [Concomitant]
     Indication: PRODUCT USED FOR UNKNOWN INDICATION
  9. GABAPENTIN [Concomitant]
     Indication: PRODUCT USED FOR UNKNOWN INDICATION
  10. LOPERAMID [Concomitant]
     Indication: PRODUCT USED FOR UNKNOWN INDICATION
  11. MIRTAZAPINE [Concomitant]
     Indication: PRODUCT USED FOR UNKNOWN INDICATION
  12. OMEPRAZOLE [Concomitant]
     Indication: PRODUCT USED FOR UNKNOWN INDICATION
  13. PARACETAMOL TABLETS BP [Concomitant]
     Indication: PRODUCT USED FOR UNKNOWN INDICATION
  14. QUININE SULFATE [Concomitant]
     Indication: PRODUCT USED FOR UNKNOWN INDICATION
  15. SULFAMETHOXAZOLE [Concomitant]
     Indication: PRODUCT USED FOR UNKNOWN INDICATION
  16. ENOXAPARIN SODIUM [Concomitant]
     Indication: DEEP VEIN THROMBOSIS

REACTIONS (2)
  - Local swelling [Recovering/Resolving]
  - Bone pain [Recovering/Resolving]
